FAERS Safety Report 10659229 (Version 1)
Quarter: 2014Q4

REPORT INFORMATION
  Report Type: Spontaneous
  Country: US (occurrence: US)
  Receive Date: 20141217
  Receipt Date: 20141217
  Transmission Date: 20150529
  Serious: No
  Sender: FDA-Public Use
  Company Number: US-009507513-1412USA008439

PATIENT
  Sex: Female

DRUGS (1)
  1. LOTRIMIN AF ATHLETE^S FOOT DEODORANT SPRAY POWDER [Suspect]
     Active Substance: MICONAZOLE NITRATE
     Indication: TINEA PEDIS
     Dosage: UNK, UNKNOWN
     Route: 061

REACTIONS (1)
  - Drug ineffective [Unknown]
